FAERS Safety Report 16275083 (Version 9)
Quarter: 2021Q1

REPORT INFORMATION
  Report Type: Report from Study
  Country: US (occurrence: US)
  Receive Date: 20190504
  Receipt Date: 20210306
  Transmission Date: 20210419
  Serious: Yes (Hospitalization, Other)
  Sender: FDA-Public Use
  Company Number: PHEH2019US018010

PATIENT
  Age: 68 Year
  Sex: Female

DRUGS (3)
  1. ENTRESTO [Suspect]
     Active Substance: SACUBITRIL\VALSARTAN
     Indication: CARDIAC FAILURE CHRONIC
     Dosage: 50 MG
     Route: 065
  2. ENTRESTO [Suspect]
     Active Substance: SACUBITRIL\VALSARTAN
     Indication: CARDIAC FAILURE CONGESTIVE
     Dosage: 49 MG, BID
     Route: 048
     Dates: start: 2018
  3. ENTRESTO [Suspect]
     Active Substance: SACUBITRIL\VALSARTAN
     Indication: CARDIOMYOPATHY

REACTIONS (18)
  - Cardiomegaly [Unknown]
  - Ejection fraction decreased [Unknown]
  - Weight increased [Unknown]
  - Cardiac disorder [Unknown]
  - Asthenia [Unknown]
  - Pneumonia [Recovered/Resolved]
  - Abscess limb [Unknown]
  - Urinary tract infection [Recovered/Resolved]
  - Dyspnoea [Unknown]
  - Cardiac valve disease [Unknown]
  - Hypotension [Unknown]
  - Drug ineffective [Unknown]
  - Renal disorder [Unknown]
  - Sepsis [Recovered/Resolved]
  - Ascites [Unknown]
  - Blood sodium decreased [Unknown]
  - Heart rate decreased [Unknown]
  - Myocardial hypoxia [Unknown]

NARRATIVE: CASE EVENT DATE: 201909
